FAERS Safety Report 21208742 (Version 1)
Quarter: 2022Q3

REPORT INFORMATION
  Report Type: Spontaneous
  Country: US (occurrence: None)
  Receive Date: 20220812
  Receipt Date: 20220812
  Transmission Date: 20221027
  Serious: Yes (Other)
  Sender: FDA-Public Use
  Company Number: None

PATIENT
  Age: 57 Year
  Sex: Male
  Weight: 72 kg

DRUGS (5)
  1. PAXLOVID [Suspect]
     Active Substance: NIRMATRELVIR\RITONAVIR
     Indication: COVID-19
     Dosage: FREQUENCY : TWICE A DAY;?
     Route: 048
     Dates: start: 20220810
  2. IBUPROFEN [Concomitant]
     Active Substance: IBUPROFEN
     Dates: start: 20220810
  3. VITAMIN B [Concomitant]
     Active Substance: VITAMIN B
     Dates: start: 20200301, end: 20220810
  4. VITAMIN C [Concomitant]
     Active Substance: ASCORBIC ACID
     Dates: start: 20200301, end: 20220810
  5. CALCIUM [Concomitant]
     Active Substance: CALCIUM
     Dates: start: 20200301, end: 20220810

REACTIONS (1)
  - Salivary hypersecretion [None]

NARRATIVE: CASE EVENT DATE: 20220812
